FAERS Safety Report 5982939-9 (Version None)
Quarter: 2008Q4

REPORT INFORMATION
  Report Type: 
  Country: None (occurrence: None)
  Receive Date: 20081208
  Receipt Date: 20080114
  Transmission Date: 20090506
  Serious: Yes (Hospitalization)
  Sender: FDA-Public Use
  Company Number: US-AMGEN-STX256351

PATIENT
  Sex: Male

DRUGS (10)
  1. ENBREL [Suspect]
     Indication: PSORIATIC ARTHROPATHY
     Route: 030
     Dates: start: 20071024, end: 20071101
  2. ENBREL [Suspect]
     Indication: PSORIASIS
  3. VYTORIN [Concomitant]
  4. POTASSIUM CHLORIDE [Concomitant]
  5. ATACAND [Concomitant]
  6. COREG [Concomitant]
  7. ASPIRIN [Concomitant]
  8. LIPITOR [Concomitant]
  9. GLYBURIDE [Concomitant]
  10. NIFEDIPINE [Concomitant]

REACTIONS (3)
  - CELLULITIS STAPHYLOCOCCAL [None]
  - FATIGUE [None]
  - PSORIASIS [None]
